FAERS Safety Report 22953830 (Version 3)
Quarter: 2023Q4

REPORT INFORMATION
  Report Type: Report from Study
  Country: US (occurrence: US)
  Receive Date: 20230918
  Receipt Date: 20231012
  Transmission Date: 20240109
  Serious: No
  Sender: FDA-Public Use
  Company Number: US-SAREPTA THERAPEUTICS INC.-SRP2023-003677

PATIENT
  Age: 5 Year
  Sex: Male

DRUGS (1)
  1. ELEVIDYS [Suspect]
     Active Substance: DELANDISTROGENE MOXEPARVOVEC-ROKL
     Indication: Product used for unknown indication
     Dosage: UNK
     Route: 042
     Dates: start: 20230804, end: 20230804

REACTIONS (7)
  - Lip pruritus [Recovered/Resolved]
  - Abdominal pain [Unknown]
  - Brain natriuretic peptide increased [Unknown]
  - Fatigue [Unknown]
  - Troponin I increased [Unknown]
  - Vomiting [Recovered/Resolved]
  - Nausea [Not Recovered/Not Resolved]

NARRATIVE: CASE EVENT DATE: 20230804
